FAERS Safety Report 24808655 (Version 1)
Quarter: 2025Q1

REPORT INFORMATION
  Report Type: Spontaneous
  Country: CN (occurrence: CN)
  Receive Date: 20250106
  Receipt Date: 20250106
  Transmission Date: 20250409
  Serious: Yes (Hospitalization)
  Sender: BEIGENE
  Company Number: CN-BEIGENE-BGN-2024-021063

PATIENT

DRUGS (7)
  1. BRUKINSA [Suspect]
     Active Substance: ZANUBRUTINIB
     Indication: Non-Hodgkin^s lymphoma
     Dosage: 160 MILLIGRAM, BID
     Route: 048
     Dates: start: 20241223
  2. BRUKINSA [Suspect]
     Active Substance: ZANUBRUTINIB
     Indication: B-cell small lymphocytic lymphoma
  3. BRUKINSA [Suspect]
     Active Substance: ZANUBRUTINIB
     Indication: Waldenstrom^s macroglobulinaemia
  4. RITUXIMAB [Suspect]
     Active Substance: RITUXIMAB
     Indication: Non-Hodgkin^s lymphoma
     Route: 041
     Dates: start: 20241223
  5. RITUXIMAB [Suspect]
     Active Substance: RITUXIMAB
     Indication: B-cell small lymphocytic lymphoma
  6. RITUXIMAB [Suspect]
     Active Substance: RITUXIMAB
     Indication: Waldenstrom^s macroglobulinaemia
  7. SODIUM CHLORIDE [Concomitant]
     Active Substance: SODIUM CHLORIDE
     Indication: Vehicle solution use
     Route: 041
     Dates: start: 20241223

REACTIONS (1)
  - Tumour lysis syndrome [Recovering/Resolving]

NARRATIVE: CASE EVENT DATE: 20241224
